FAERS Safety Report 22595876 (Version 1)
Quarter: 2023Q2

REPORT INFORMATION
  Report Type: Spontaneous
  Country: US (occurrence: US)
  Receive Date: 20230613
  Receipt Date: 20230613
  Transmission Date: 20230721
  Serious: No
  Sender: FDA-Public Use
  Company Number: US-CARA THERAPEUTICS, INC.-2023-00124-US

PATIENT
  Sex: Female

DRUGS (1)
  1. KORSUVA [Suspect]
     Active Substance: DIFELIKEFALIN ACETATE
     Indication: Pruritus
     Dosage: UNK

REACTIONS (6)
  - Chest discomfort [Unknown]
  - Respiration abnormal [Unknown]
  - Hypoaesthesia [Unknown]
  - Sensory disturbance [Unknown]
  - Therapeutic product effect incomplete [Unknown]
  - Somnolence [Unknown]
